FAERS Safety Report 17833938 (Version 1)
Quarter: 2020Q2

REPORT INFORMATION
  Report Type: Spontaneous
  Country: US (occurrence: US)
  Receive Date: 20200528
  Receipt Date: 20200528
  Transmission Date: 20200714
  Serious: Yes (Death)
  Sender: FDA-Public Use
  Company Number: None

PATIENT
  Age: 89 Year
  Sex: Female

DRUGS (2)
  1. RETACRIT [Suspect]
     Active Substance: EPOETIN ALFA-EPBX
     Indication: MYELODYSPLASTIC SYNDROME
     Dosage: ?          OTHER FREQUENCY:ONE A WEEK;?
     Route: 030
     Dates: start: 20200521
  2. RETACRIT [Suspect]
     Active Substance: EPOETIN ALFA-EPBX
     Indication: 5Q MINUS SYNDROME
     Dosage: ?          OTHER FREQUENCY:ONE A WEEK;?
     Route: 030
     Dates: start: 20200521

REACTIONS (1)
  - Death [None]

NARRATIVE: CASE EVENT DATE: 20200522
